FAERS Safety Report 20410917 (Version 10)
Quarter: 2022Q4

REPORT INFORMATION
  Report Type: Report from Study
  Country: CA (occurrence: CA)
  Receive Date: 20220201
  Receipt Date: 20221211
  Transmission Date: 20230113
  Serious: Yes (Other)
  Sender: FDA-Public Use
  Company Number: CA-BAUSCH-BL-2021-008968

PATIENT
  Sex: Female

DRUGS (19)
  1. CONTRAVE [Suspect]
     Active Substance: BUPROPION HYDROCHLORIDE\NALTREXONE HYDROCHLORIDE
     Indication: Weight control
     Dosage: 90 MG/8 MG, 1 TAB MORNING
     Route: 048
     Dates: start: 20210222, end: 20210228
  2. CONTRAVE [Suspect]
     Active Substance: BUPROPION HYDROCHLORIDE\NALTREXONE HYDROCHLORIDE
     Dosage: 90 MG/8 MG, 1 TAB MORNING, 1 TAB EVENING
     Route: 048
     Dates: start: 20210301, end: 20210307
  3. CONTRAVE [Suspect]
     Active Substance: BUPROPION HYDROCHLORIDE\NALTREXONE HYDROCHLORIDE
     Dosage: 90 MG/ 8MG, 2 TAB MORNING, 1 TAB EVENING
     Route: 048
     Dates: start: 20210308, end: 20210308
  4. CONTRAVE [Suspect]
     Active Substance: BUPROPION HYDROCHLORIDE\NALTREXONE HYDROCHLORIDE
     Dosage: 90 MG/8 MG, 2 TAB MORNING
     Route: 048
     Dates: start: 20210309, end: 20210309
  5. CONTRAVE [Suspect]
     Active Substance: BUPROPION HYDROCHLORIDE\NALTREXONE HYDROCHLORIDE
     Dosage: 90 MG/8 MG, 1 TAB MORNING, 1 TAB EVENING
     Route: 048
     Dates: start: 20210310, end: 20210314
  6. CONTRAVE [Suspect]
     Active Substance: BUPROPION HYDROCHLORIDE\NALTREXONE HYDROCHLORIDE
     Dosage: 90 MG/8 MG, 2 TAB MORNING, 1 TAB EVENING
     Route: 048
     Dates: start: 20210315, end: 20210331
  7. CONTRAVE [Suspect]
     Active Substance: BUPROPION HYDROCHLORIDE\NALTREXONE HYDROCHLORIDE
     Dosage: 90 MG/8 MG, 2 TAB IN MORNING, 2 TAB IN EVENING
     Route: 048
     Dates: start: 20210401
  8. LYRICA [Concomitant]
     Active Substance: PREGABALIN
     Indication: Neuropathy peripheral
     Dosage: 4 DOSAGE FORMS
     Route: 048
  9. LYRICA [Concomitant]
     Active Substance: PREGABALIN
     Dosage: 2 DOSAGE FORMS
     Route: 048
  10. LYRICA [Concomitant]
     Active Substance: PREGABALIN
     Dosage: 3 DOSAGE FORMS
     Route: 048
     Dates: start: 202105
  11. SIMVASTATIN [Concomitant]
     Active Substance: SIMVASTATIN
     Indication: Product used for unknown indication
     Dosage: UNK
     Route: 048
  12. PERINDOPRIL [Concomitant]
     Active Substance: PERINDOPRIL
     Indication: Product used for unknown indication
     Dosage: UNK
     Route: 048
  13. GLICLAZIDE [Concomitant]
     Active Substance: GLICLAZIDE
     Indication: Blood glucose abnormal
     Dosage: UNK
     Route: 048
     Dates: end: 202105
  14. JARDIANCE [Concomitant]
     Active Substance: EMPAGLIFLOZIN
     Indication: Blood glucose abnormal
     Dosage: 2 DOSAGE FORMS
  15. JARDIANCE [Concomitant]
     Active Substance: EMPAGLIFLOZIN
     Dosage: 1 DOSAGE FORMS
  16. CYMBALTA [Concomitant]
     Active Substance: DULOXETINE HYDROCHLORIDE
     Indication: Neuropathy peripheral
     Dosage: 60 MG
  17. CYMBALTA [Concomitant]
     Active Substance: DULOXETINE HYDROCHLORIDE
     Indication: Anxiety
  18. TRULICITY [Concomitant]
     Active Substance: DULAGLUTIDE
     Indication: Blood glucose abnormal
     Dosage: 1 IN 1 WK
  19. SYNJARDY [Concomitant]
     Active Substance: EMPAGLIFLOZIN\METFORMIN HYDROCHLORIDE
     Indication: Blood glucose increased
     Dosage: 2 TABS/DAY

REACTIONS (37)
  - Neuropathy peripheral [Not Recovered/Not Resolved]
  - Fall [Unknown]
  - Bone disorder [Unknown]
  - Blood pressure decreased [Unknown]
  - Frustration tolerance decreased [Not Recovered/Not Resolved]
  - Food craving [Not Recovered/Not Resolved]
  - High-pitched crying [Recovering/Resolving]
  - Glycosylated haemoglobin increased [Not Recovered/Not Resolved]
  - Weight increased [Not Recovered/Not Resolved]
  - Aphthous ulcer [Not Recovered/Not Resolved]
  - Blood glucose increased [Recovered/Resolved]
  - Skin laceration [Unknown]
  - Impaired healing [Not Recovered/Not Resolved]
  - Pain in extremity [Not Recovered/Not Resolved]
  - Joint injury [Unknown]
  - Contusion [Unknown]
  - Carpal tunnel syndrome [Unknown]
  - Trigger finger [Unknown]
  - Gastrooesophageal reflux disease [Not Recovered/Not Resolved]
  - Burning sensation [Unknown]
  - Decreased appetite [Not Recovered/Not Resolved]
  - Blood glucose decreased [Not Recovered/Not Resolved]
  - Depressed mood [Not Recovered/Not Resolved]
  - Eructation [Not Recovered/Not Resolved]
  - Tremor [Recovered/Resolved]
  - Headache [Unknown]
  - Initial insomnia [Not Recovered/Not Resolved]
  - Dizziness [Recovered/Resolved]
  - Constipation [Not Recovered/Not Resolved]
  - Fatigue [Not Recovered/Not Resolved]
  - Nausea [Recovered/Resolved]
  - Middle insomnia [Not Recovered/Not Resolved]
  - Memory impairment [Not Recovered/Not Resolved]
  - Nightmare [Not Recovered/Not Resolved]
  - Mood swings [Recovered/Resolved]
  - Palpitations [Unknown]
  - Therapeutic product effect decreased [Unknown]

NARRATIVE: CASE EVENT DATE: 20210101
